FAERS Safety Report 9920838 (Version 2)
Quarter: 2014Q1

REPORT INFORMATION
  Report Type: Report from Study
  Country: CA (occurrence: CA)
  Receive Date: 20140225
  Receipt Date: 20140225
  Transmission Date: 20141002
  Serious: Yes (Death, Other)
  Sender: FDA-Public Use
  Company Number: CA-ROCHE-1300415

PATIENT
  Age: 56 Year
  Sex: Female

DRUGS (1)
  1. AVASTIN [Suspect]
     Indication: COLORECTAL CANCER
     Route: 042
     Dates: start: 20131007

REACTIONS (5)
  - Gastroenteritis viral [Unknown]
  - Death [Fatal]
  - Pain [Unknown]
  - Hypertension [Unknown]
  - Anxiety [Unknown]
